FAERS Safety Report 23443880 (Version 2)
Quarter: 2024Q1

REPORT INFORMATION
  Report Type: Spontaneous
  Country: CN (occurrence: CN)
  Receive Date: 20240125
  Receipt Date: 20240129
  Transmission Date: 20240410
  Serious: Yes (Other)
  Sender: FDA-Public Use
  Company Number: CN-PFIZER INC-PV202400009708

PATIENT
  Age: 85 Year
  Sex: Female
  Weight: 60 kg

DRUGS (5)
  1. CIBINQO [Suspect]
     Active Substance: ABROCITINIB
     Indication: Dermatitis
     Dosage: 100 MG, 1X/DAY
     Route: 048
     Dates: start: 20231219, end: 20240101
  2. CIBINQO [Suspect]
     Active Substance: ABROCITINIB
     Indication: Dermatitis allergic
  3. COMPOUND VITAMIN B [Concomitant]
     Indication: Hypovitaminosis
     Dosage: 2 DF, 2X/DAY
     Route: 048
     Dates: start: 20231219, end: 20240106
  4. VITAMIN B1 [Concomitant]
     Active Substance: THIAMINE HYDROCHLORIDE
     Indication: Hypovitaminosis
     Dosage: 1 TABLET, 3X/DAY
     Route: 048
     Dates: start: 20231219, end: 20231219
  5. VITAMIN B2 [Concomitant]
     Active Substance: RIBOFLAVIN
     Indication: Hypovitaminosis
     Dosage: 2 TABLETS, 3X/DAY
     Route: 048
     Dates: start: 20231219, end: 20240103

REACTIONS (9)
  - Intestinal obstruction [Recovering/Resolving]
  - Headache [Recovering/Resolving]
  - Abdominal distension [Recovering/Resolving]
  - Hiccups [Recovering/Resolving]
  - Gastrointestinal sounds abnormal [Recovering/Resolving]
  - Abdominal discomfort [Recovering/Resolving]
  - Skin mass [Unknown]
  - Pruritus [Unknown]
  - Off label use [Unknown]

NARRATIVE: CASE EVENT DATE: 20231219
